FAERS Safety Report 24851403 (Version 1)
Quarter: 2025Q1

REPORT INFORMATION
  Report Type: Spontaneous
  Country: US (occurrence: US)
  Receive Date: 20250116
  Receipt Date: 20250116
  Transmission Date: 20250408
  Serious: No
  Sender: SK LIFE SCIENCE
  Company Number: US-SK LIFE SCIENCE, INC-SKPVG-2024-001047

PATIENT

DRUGS (12)
  1. XCOPRI [Suspect]
     Active Substance: CENOBAMATE
     Indication: Seizure
     Route: 048
     Dates: start: 20220529, end: 20220611
  2. XCOPRI [Suspect]
     Active Substance: CENOBAMATE
     Indication: Focal dyscognitive seizures
     Route: 048
     Dates: start: 20220612
  3. XCOPRI [Suspect]
     Active Substance: CENOBAMATE
     Indication: Epilepsy
     Route: 048
     Dates: start: 20221010
  4. XCOPRI [Suspect]
     Active Substance: CENOBAMATE
     Indication: Simple partial seizures
     Route: 048
     Dates: start: 20221031
  5. XCOPRI [Suspect]
     Active Substance: CENOBAMATE
     Dosage: 250MG (200 MILLIGRAM AND 50 MG) QD
     Route: 048
     Dates: start: 20240316, end: 202405
  6. XCOPRI [Suspect]
     Active Substance: CENOBAMATE
     Dosage: 250MG (200 MILLIGRAM AND 50 MG) QD
     Route: 048
     Dates: start: 20240316, end: 202405
  7. XCOPRI [Suspect]
     Active Substance: CENOBAMATE
     Route: 048
     Dates: start: 202405
  8. XCOPRI [Suspect]
     Active Substance: CENOBAMATE
     Dosage: 250 MILLIGRAM, QD
     Route: 048
     Dates: end: 20240616
  9. ZONISAMIDE [Concomitant]
     Active Substance: ZONISAMIDE
     Indication: Product used for unknown indication
     Dosage: 500 MILLIGRAM, QD (300MG IN THE MORNING, AND 200MG AT NIGHT)
     Route: 065
  10. VITAMINS [Concomitant]
     Active Substance: VITAMINS
     Indication: Product used for unknown indication
     Route: 065
  11. FOLIC ACID [Concomitant]
     Active Substance: FOLIC ACID
     Indication: Product used for unknown indication
     Dosage: 1 MILLIGRAM A DAY
     Route: 065
  12. IRON [Concomitant]
     Active Substance: IRON
     Indication: Product used for unknown indication
     Route: 065

REACTIONS (6)
  - Seizure [Unknown]
  - Focal dyscognitive seizures [Unknown]
  - Product dose omission issue [Recovered/Resolved]
  - Seizure [Unknown]
  - Seizure [Unknown]
  - Product dose omission issue [Not Recovered/Not Resolved]

NARRATIVE: CASE EVENT DATE: 20240101
